FAERS Safety Report 21535128 (Version 1)
Quarter: 2022Q4

REPORT INFORMATION
  Report Type: Spontaneous
  Country: PT (occurrence: PT)
  Receive Date: 20221101
  Receipt Date: 20221101
  Transmission Date: 20230113
  Serious: Yes (Other)
  Sender: FDA-Public Use
  Company Number: PT-009507513-2210PRT010267

PATIENT
  Age: 32 Year
  Sex: Male

DRUGS (1)
  1. DORAVIRINE [Suspect]
     Active Substance: DORAVIRINE
     Indication: HIV infection
     Dosage: UNK
     Route: 048

REACTIONS (1)
  - Dependence [Unknown]
